FAERS Safety Report 17828107 (Version 1)
Quarter: 2020Q2

REPORT INFORMATION
  Report Type: Spontaneous
  Country: US (occurrence: US)
  Receive Date: 20200527
  Receipt Date: 20200527
  Transmission Date: 20200714
  Serious: No
  Sender: FDA-Public Use
  Company Number: None

PATIENT
  Age: 27 Year
  Sex: Male
  Weight: 67.5 kg

DRUGS (7)
  1. FISH OIL [Concomitant]
     Active Substance: FISH OIL
  2. CLONIDINE. [Concomitant]
     Active Substance: CLONIDINE
  3. DEXTROAMPHET SACCHARAT, AMPHET ASPARTATE, DEXTROAMPHET SULFATE AND AMPHET SULFAT [Suspect]
     Active Substance: AMPHETAMINE ASPARTATE\AMPHETAMINE SULFATE\DEXTROAMPHETAMINE SACCHARATE\DEXTROAMPHETAMINE SULFATE
     Indication: ATTENTION DEFICIT HYPERACTIVITY DISORDER
     Route: 048
     Dates: start: 20200515, end: 20200526
  4. ALBUTEROL. [Concomitant]
     Active Substance: ALBUTEROL
  5. VITAMIN D [Concomitant]
     Active Substance: VITAMIN D NOS
  6. ADVAIR HFA [Concomitant]
     Active Substance: FLUTICASONE PROPIONATE\SALMETEROL XINAFOATE
  7. MULTIVITAMIN [Concomitant]
     Active Substance: VITAMINS

REACTIONS (7)
  - Headache [None]
  - Product substitution issue [None]
  - Depression [None]
  - Anxiety [None]
  - Feeling jittery [None]
  - Tinnitus [None]
  - Condition aggravated [None]
